FAERS Safety Report 23080372 (Version 2)
Quarter: 2023Q4

REPORT INFORMATION
  Report Type: Spontaneous
  Country: HK (occurrence: HK)
  Receive Date: 20231018
  Receipt Date: 20231108
  Transmission Date: 20240110
  Serious: Yes (Hospitalization)
  Sender: FDA-Public Use
  Company Number: HK-002147023-NVSC2023HK150711

PATIENT
  Age: 64 Year
  Sex: Male
  Weight: 51.4 kg

DRUGS (10)
  1. CARBOPLATIN [Suspect]
     Active Substance: CARBOPLATIN
     Indication: Small cell lung cancer limited stage
     Dosage: 517 MG, Q3W
     Route: 041
     Dates: start: 20230404, end: 20230406
  2. CARBOPLATIN [Suspect]
     Active Substance: CARBOPLATIN
     Dosage: 517 MG, Q3W
     Route: 041
     Dates: start: 20230404, end: 20230406
  3. CARBOPLATIN [Suspect]
     Active Substance: CARBOPLATIN
     Dosage: 517 MG, Q3W
     Route: 041
     Dates: start: 20230404, end: 20230406
  4. CARBOPLATIN [Suspect]
     Active Substance: CARBOPLATIN
     Dosage: 517 MG, Q3W
     Route: 041
     Dates: start: 20230404, end: 20230406
  5. CARBOPLATIN [Suspect]
     Active Substance: CARBOPLATIN
     Dosage: 520 MG, Q3W
     Route: 041
     Dates: start: 20230427, end: 20230427
  6. CARBOPLATIN [Suspect]
     Active Substance: CARBOPLATIN
     Dosage: UNK
     Route: 065
  7. CARBOPLATIN [Suspect]
     Active Substance: CARBOPLATIN
     Dosage: UNK
     Route: 065
  8. ETOPOSIDE [Suspect]
     Active Substance: ETOPOSIDE
     Indication: Small cell lung cancer limited stage
     Dosage: 153 MG, QD
     Route: 041
     Dates: start: 20230404, end: 20230406
  9. ETOPOSIDE [Suspect]
     Active Substance: ETOPOSIDE
     Dosage: 153 MG, QD
     Route: 041
     Dates: start: 20230404
  10. ETOPOSIDE [Suspect]
     Active Substance: ETOPOSIDE
     Dosage: 152 MG, QD
     Route: 041
     Dates: start: 20230427, end: 20230429

REACTIONS (2)
  - Odynophagia [Recovered/Resolved]
  - Febrile neutropenia [Recovered/Resolved]
